FAERS Safety Report 13955597 (Version 1)
Quarter: 2017Q3

REPORT INFORMATION
  Report Type: Spontaneous
  Country: MX (occurrence: MX)
  Receive Date: 20170911
  Receipt Date: 20170911
  Transmission Date: 20171128
  Serious: Yes (Other)
  Sender: FDA-Public Use
  Company Number: MX-GLAXOSMITHKLINE-MX2017GSK138331

PATIENT
  Sex: Male

DRUGS (1)
  1. SERETIDE [Suspect]
     Active Substance: FLUTICASONE PROPIONATE\SALMETEROL XINAFOATE
     Indication: PRODUCT USED FOR UNKNOWN INDICATION
     Dosage: UNK

REACTIONS (9)
  - Bronchiolitis [Unknown]
  - Respiratory gas exchange disorder [Unknown]
  - Idiopathic pulmonary fibrosis [Not Recovered/Not Resolved]
  - Inflammation [Not Recovered/Not Resolved]
  - Bronchopulmonary disease [Not Recovered/Not Resolved]
  - Increased bronchial secretion [Not Recovered/Not Resolved]
  - Bronchitis [Unknown]
  - Cough [Not Recovered/Not Resolved]
  - Lung disorder [Not Recovered/Not Resolved]
